FAERS Safety Report 14066908 (Version 2)
Quarter: 2017Q4

REPORT INFORMATION
  Report Type: Report from Study
  Country: TW (occurrence: TW)
  Receive Date: 20171009
  Receipt Date: 20171025
  Transmission Date: 20180321
  Serious: Yes (Hospitalization)
  Sender: FDA-Public Use
  Company Number: TW-BAYER-2017-185348

PATIENT
  Age: 88 Year
  Sex: Male
  Weight: 81 kg

DRUGS (7)
  1. ESOMEPRAZOLE [Concomitant]
     Active Substance: ESOMEPRAZOLE
     Dosage: 1 DF, QD
     Dates: start: 20150325
  2. NEXAVAR [Suspect]
     Active Substance: SORAFENIB
     Indication: HEPATOCELLULAR CARCINOMA
     Dosage: DAILY DOSE 800 MG
     Dates: start: 20151028, end: 20170609
  3. FLUMARIN [Concomitant]
     Active Substance: FLOMOXEF SODIUM
  4. TRAMAL [Concomitant]
     Active Substance: TRAMADOL
     Dosage: DAILY DOSE 2.25
     Dates: start: 20150323, end: 20150323
  5. DOXORUBICIN [Concomitant]
     Active Substance: DOXORUBICIN
     Dosage: 15 MG, UNK
  6. ASPIRIN. [Concomitant]
     Active Substance: ASPIRIN
     Dosage: DAILY DOSE 100 MG
     Dates: start: 2015
  7. NEXAVAR [Suspect]
     Active Substance: SORAFENIB
     Indication: HEPATOCELLULAR CARCINOMA
     Dosage: DAILY DOSE 800 MG
     Dates: start: 20150413, end: 20150930

REACTIONS (1)
  - Chemical peritonitis [Recovered/Resolved]

NARRATIVE: CASE EVENT DATE: 20150916
